FAERS Safety Report 16026729 (Version 3)
Quarter: 2019Q2

REPORT INFORMATION
  Report Type: Spontaneous
  Country: FR (occurrence: FR)
  Receive Date: 20190303
  Receipt Date: 20190424
  Transmission Date: 20190711
  Serious: Yes (Other)
  Sender: FDA-Public Use
  Company Number: FR-ACCORD-104088

PATIENT
  Age: 48 Year
  Sex: Female

DRUGS (7)
  1. LEPONEX [Suspect]
     Active Substance: CLOZAPINE
     Indication: SCHIZOPHRENIA
     Dosage: 250 MG FROM 05-MAY-18 TO 14-MAY-18, 150 MG 20-APR-18 TO 23-APR-18,275 MG FROM 14-MAY-2018
     Route: 048
     Dates: start: 201802, end: 20180331
  2. TERCIAN [Concomitant]
     Active Substance: CYAMEMAZINE
     Dosage: 3.5 DF, QD
     Route: 048
     Dates: start: 20180131
  3. CLOZAPINE. [Suspect]
     Active Substance: CLOZAPINE
     Indication: PRODUCT USED FOR UNKNOWN INDICATION
     Dosage: 125 MG,150 MG,200 MG,250 MG,275 MG
     Dates: start: 20180419, end: 20180420
  4. SOLIAN [Concomitant]
     Active Substance: AMISULPRIDE
     Dosage: 3 DF, QD, 1 DF QD ON 05-MAY-2018
     Route: 048
     Dates: start: 20180227
  5. OLANZAPINE. [Suspect]
     Active Substance: OLANZAPINE
     Indication: PRODUCT USED FOR UNKNOWN INDICATION
     Route: 065
     Dates: start: 201802
  6. ZOLOFT [Concomitant]
     Active Substance: SERTRALINE HYDROCHLORIDE
     Dosage: 3 DF, QD
     Route: 048
     Dates: start: 20180131
  7. ALPRAZOLAM. [Concomitant]
     Active Substance: ALPRAZOLAM
     Dosage: 3 DF, QD
     Route: 048
     Dates: start: 20180131

REACTIONS (2)
  - Condition aggravated [Not Recovered/Not Resolved]
  - Lymphopenia [Not Recovered/Not Resolved]
